FAERS Safety Report 11232411 (Version 2)
Quarter: 2015Q3

REPORT INFORMATION
  Report Type: Spontaneous
  Country: US (occurrence: US)
  Receive Date: 20150701
  Receipt Date: 20150826
  Transmission Date: 20151125
  Serious: No
  Sender: FDA-Public Use
  Company Number: PHEH2015US012592

PATIENT
  Age: 65 Year
  Sex: Female
  Weight: 76.7 kg

DRUGS (1)
  1. GLEEVEC [Suspect]
     Active Substance: IMATINIB MESYLATE
     Indication: GASTROINTESTINAL STROMAL TUMOUR
     Dosage: 400 MG, QD
     Route: 048
     Dates: start: 20150610

REACTIONS (6)
  - Fluid retention [Recovering/Resolving]
  - Wheezing [Unknown]
  - Dyspnoea exertional [Recovering/Resolving]
  - Peripheral swelling [Recovering/Resolving]
  - Oedema peripheral [Unknown]
  - Headache [Unknown]

NARRATIVE: CASE EVENT DATE: 20150629
